FAERS Safety Report 7367061-1 (Version None)
Quarter: 2011Q1

REPORT INFORMATION
  Report Type: 
  Country: None (occurrence: None)
  Receive Date: 20110322
  Receipt Date: 20101227
  Transmission Date: 20110831
  Serious: Yes (Disabling)
  Sender: FDA-Public Use
  Company Number: JP-ASTRAZENECA-2010SE51804

PATIENT
  Age: 70 Year
  Sex: Male

DRUGS (2)
  1. ROPIVACAINE HYDROCHLORIDE [Suspect]
     Indication: ANALGESIC THERAPY
     Dosage: 4 ML/HR
     Route: 008
     Dates: start: 20100701, end: 20100701
  2. ULTIVA [Concomitant]
     Dates: start: 20100701, end: 20100701

REACTIONS (1)
  - SPINAL CORD INFARCTION [None]
